FAERS Safety Report 17187474 (Version 1)
Quarter: 2019Q4

REPORT INFORMATION
  Report Type: Spontaneous
  Country: GB (occurrence: GB)
  Receive Date: 20191220
  Receipt Date: 20191220
  Transmission Date: 20200122
  Serious: Yes (Other)
  Sender: FDA-Public Use
  Company Number: GB-AUROBINDO-AUR-APL-2019-106060

PATIENT
  Age: 9 Year
  Sex: Male
  Weight: 32.2 kg

DRUGS (2)
  1. VENTOLIN [Concomitant]
     Active Substance: ALBUTEROL SULFATE
     Indication: PRODUCT USED FOR UNKNOWN INDICATION
     Dosage: UNK
     Route: 065
  2. MONTELUKAST [Suspect]
     Active Substance: MONTELUKAST SODIUM
     Indication: ASTHMA
     Dosage: 5 MILLIGRAM
     Route: 048
     Dates: start: 2017, end: 201909

REACTIONS (5)
  - Headache [Recovered/Resolved]
  - Aggression [Recovered/Resolved]
  - Pain in extremity [Recovered/Resolved]
  - Nightmare [Recovered/Resolved]
  - Depression [Recovered/Resolved]

NARRATIVE: CASE EVENT DATE: 2017
